FAERS Safety Report 7638848-2 (Version None)
Quarter: 2011Q3

REPORT INFORMATION
  Report Type: 
  Country: None (occurrence: None)
  Receive Date: 20110726
  Receipt Date: 20110726
  Transmission Date: 20111222
  Serious: No
  Sender: FDA-Public Use
  Company Number: None

PATIENT
  Sex: Male
  Weight: 124.7392 kg

DRUGS (1)
  1. LARIAM [Suspect]
     Indication: MALARIA PROPHYLAXIS
     Dates: start: 19931006, end: 19940325

REACTIONS (5)
  - ANGER [None]
  - EMOTIONAL DISORDER [None]
  - MENTAL DISORDER [None]
  - INSOMNIA [None]
  - VISION BLURRED [None]
